FAERS Safety Report 9101876 (Version 1)
Quarter: 2013Q1

REPORT INFORMATION
  Report Type: Spontaneous
  Country: US (occurrence: US)
  Receive Date: 20130218
  Receipt Date: 20130218
  Transmission Date: 20140127
  Serious: Yes (Other)
  Sender: FDA-Public Use
  Company Number: PHHY2013US013807

PATIENT
  Age: 65 Year
  Sex: Male

DRUGS (1)
  1. METRONIDAZOLE [Suspect]
     Indication: CLOSTRIDIUM DIFFICILE COLITIS
     Dosage: 500 MG, TID
     Route: 048

REACTIONS (7)
  - Hypoaesthesia [Recovering/Resolving]
  - Dysarthria [Recovering/Resolving]
  - Speech disorder [Recovering/Resolving]
  - Paraesthesia [Recovering/Resolving]
  - Ataxia [Recovering/Resolving]
  - Gait disturbance [Recovering/Resolving]
  - Decreased vibratory sense [Recovering/Resolving]
